FAERS Safety Report 5136106-1 (Version None)
Quarter: 2006Q4

REPORT INFORMATION
  Report Type: 
  Country: None (occurrence: None)
  Receive Date: 20061027
  Receipt Date: 20061024
  Transmission Date: 20070319
  Serious: Yes (Hospitalization)
  Sender: FDA-Public Use
  Company Number: US-BRISTOL-MYERS SQUIBB COMPANY-13555966

PATIENT
  Age: 55 Year
  Sex: Male
  Weight: 120 kg

DRUGS (1)
  1. DEFINITY [Suspect]
     Indication: ECHOCARDIOGRAM
     Dosage: DILUTED BOLUS OF 2.6 CC OF PERFLUTREN IV.
     Route: 040

REACTIONS (4)
  - DYSPNOEA [None]
  - PRURITUS [None]
  - THROAT TIGHTNESS [None]
  - URTICARIA [None]
